FAERS Safety Report 7233097-4 (Version None)
Quarter: 2011Q1

REPORT INFORMATION
  Report Type: 
  Country: None (occurrence: None)
  Receive Date: 20110119
  Receipt Date: 20110107
  Transmission Date: 20110831
  Serious: Yes (Hospitalization, Other)
  Sender: FDA-Public Use
  Company Number: PHHY2010US78209

PATIENT
  Sex: Male

DRUGS (2)
  1. GLEEVEC [Suspect]
     Indication: GASTRIC CANCER
     Dosage: 400 MG
     Route: 048
     Dates: start: 20091215
  2. GLEEVEC [Suspect]
     Dosage: 400 MG
     Route: 048
     Dates: start: 20101015

REACTIONS (7)
  - GASTROINTESTINAL HAEMORRHAGE [None]
  - PERIPHERAL ARTERIAL OCCLUSIVE DISEASE [None]
  - METASTASES TO LIVER [None]
  - MYOCARDIAL INFARCTION [None]
  - OEDEMA PERIPHERAL [None]
  - NEOPLASM MALIGNANT [None]
  - GASTROINTESTINAL STENOSIS [None]
